FAERS Safety Report 8797534 (Version 1)
Quarter: 2012Q4

REPORT INFORMATION
  Report Type: 
  Country: US (occurrence: US)
  Receive Date: 20120920
  Receipt Date: 20120920
  Transmission Date: 20130627
  Serious: No
  Sender: FDA-Public Use
  Company Number: US-PFIZER INC-2012232405

PATIENT
  Age: 26 Year
  Sex: Male
  Weight: 99.77 kg

DRUGS (3)
  1. NEURONTIN [Suspect]
     Indication: PAIN IN EXTREMITY
     Dosage: 800 mg, as needed
     Dates: start: 200809
  2. NEURONTIN [Suspect]
     Indication: MUSCLE SPASMS
     Dosage: 800 mg, as needed
     Dates: end: 201009
  3. NEURONTIN [Suspect]
     Indication: PERIPHERAL NERVE INJURY

REACTIONS (3)
  - Drug ineffective [Unknown]
  - Condition aggravated [Unknown]
  - Insomnia [Unknown]
